FAERS Safety Report 17258765 (Version 1)
Quarter: 2019Q4

REPORT INFORMATION
  Report Type: Spontaneous
  Country: US (occurrence: US)
  Receive Date: 20191217
  Receipt Date: 20191217
  Transmission Date: 20200122
  Serious: Yes (Hospitalization)
  Sender: FDA-Public Use
  Company Number: None

PATIENT
  Age: 43 Year
  Sex: Female
  Weight: 51 kg

DRUGS (5)
  1. MERCAPTOPURINE. [Suspect]
     Active Substance: MERCAPTOPURINE
     Dates: end: 20190603
  2. METHOTREXATE. [Suspect]
     Active Substance: METHOTREXATE
     Dates: end: 20190604
  3. CYCLOPHOSPHAMIDE. [Suspect]
     Active Substance: CYCLOPHOSPHAMIDE
     Dates: end: 20190521
  4. CYTARABINE. [Suspect]
     Active Substance: CYTARABINE
     Dates: end: 20190531
  5. PREDNISONE. [Suspect]
     Active Substance: PREDNISONE
     Dates: end: 20190604

REACTIONS (1)
  - Pyrexia [None]

NARRATIVE: CASE EVENT DATE: 20190610
